FAERS Safety Report 8296551-2 (Version None)
Quarter: 2012Q2

REPORT INFORMATION
  Report Type: 
  Country: None (occurrence: None)
  Receive Date: 20120418
  Receipt Date: 20120301
  Transmission Date: 20120825
  Serious: Yes (Other)
  Sender: FDA-Public Use
  Company Number: US-ROCHE-GNE322744

PATIENT
  Sex: Female
  Weight: 66.738 kg

DRUGS (6)
  1. OMALIZUMAB [Suspect]
     Indication: ASTHMA
     Route: 058
     Dates: start: 20091125, end: 20111013
  2. SINGULAIR [Concomitant]
     Indication: ASTHMA
     Dosage: UNK
  3. ALVESCO [Concomitant]
     Indication: ASTHMA
     Dosage: UNK
  4. PROAIR HFA [Concomitant]
     Indication: ASTHMA
     Dosage: UNK
  5. LOVENOX [Concomitant]
     Indication: THROMBOSIS
     Dosage: UNK
  6. HYDROCODONE [Concomitant]
     Indication: BACK PAIN

REACTIONS (5)
  - UTERINE SPASM [None]
  - MATERNAL EXPOSURE DURING PREGNANCY [None]
  - GESTATIONAL DIABETES [None]
  - UPPER RESPIRATORY TRACT INFECTION [None]
  - POLYHYDRAMNIOS [None]
